FAERS Safety Report 20652427 (Version 1)
Quarter: 2022Q1

REPORT INFORMATION
  Report Type: Spontaneous
  Country: US (occurrence: US)
  Receive Date: 20220330
  Receipt Date: 20220330
  Transmission Date: 20220423
  Serious: No
  Sender: FDA-Public Use
  Company Number: US-BRISTOL-MYERS SQUIBB COMPANY-2022-011822

PATIENT
  Age: 64 Year
  Sex: Female

DRUGS (1)
  1. REVLIMID [Suspect]
     Active Substance: LENALIDOMIDE
     Indication: Plasma cell myeloma
     Dosage: EVERY DAY TAKE  A WHOLE WITH WATER, WITH OR WITHOUT FOOD AT THE SAME TIME
     Route: 048
     Dates: start: 20210909

REACTIONS (3)
  - Fatigue [Unknown]
  - Weight increased [Unknown]
  - Back pain [Unknown]
